FAERS Safety Report 11350977 (Version 2)
Quarter: 2015Q3

REPORT INFORMATION
  Report Type: Spontaneous
  Country: FR (occurrence: FR)
  Receive Date: 20150807
  Receipt Date: 20150812
  Transmission Date: 20151125
  Serious: Yes (Other)
  Sender: FDA-Public Use
  Company Number: FR-JNJFOC-20150722322

PATIENT
  Age: 26 Year
  Sex: Female

DRUGS (2)
  1. OPTIMIZETTE [Suspect]
     Active Substance: DESOGESTREL
     Indication: CONTRACEPTION
     Route: 048
     Dates: start: 2013
  2. STELARA [Suspect]
     Active Substance: USTEKINUMAB
     Indication: PSORIASIS
     Route: 058
     Dates: start: 20111221

REACTIONS (3)
  - Pupils unequal [Recovered/Resolved]
  - Pupillary disorder [Recovered/Resolved]
  - Diplopia [Recovered/Resolved]

NARRATIVE: CASE EVENT DATE: 20150707
